FAERS Safety Report 11194238 (Version 1)
Quarter: 2015Q2

REPORT INFORMATION
  Report Type: Report from Study
  Country: DE (occurrence: DE)
  Receive Date: 20150616
  Receipt Date: 20150616
  Transmission Date: 20150821
  Serious: Yes (Death, Other)
  Sender: FDA-Public Use
  Company Number: DE-BAXTER-2015BAX033307

PATIENT
  Sex: Female

DRUGS (3)
  1. SORAFENIB [Suspect]
     Active Substance: SORAFENIB
     Indication: BREAST CANCER
     Dosage: MEDIAN CUMULATIVE DOSE PER PATIENT WAS 44.5 G IN COHORT 1, 77.4 G IN COHORT 2 AND 55.2 G IN COHORT 3
     Route: 048
  2. CYCLOPHOSPHAMID TROCKENSUBSTANZ 2 G BAXTER ONCOLOGY [Suspect]
     Active Substance: CYCLOPHOSPHAMIDE
     Indication: BREAST CANCER
     Route: 065
  3. EPIRUBICIN [Suspect]
     Active Substance: EPIRUBICIN
     Indication: BREAST CANCER
     Route: 065

REACTIONS (2)
  - Neutropenia [Unknown]
  - Death [Fatal]
